FAERS Safety Report 18077395 (Version 1)
Quarter: 2020Q3

REPORT INFORMATION
  Report Type: Spontaneous
  Country: FI (occurrence: FI)
  Receive Date: 20200727
  Receipt Date: 20200727
  Transmission Date: 20201103
  Serious: Yes (Other)
  Sender: FDA-Public Use
  Company Number: FI-JNJFOC-20200723695

PATIENT

DRUGS (7)
  1. FROIDIR [Suspect]
     Active Substance: CLOZAPINE
     Indication: PRODUCT USED FOR UNKNOWN INDICATION
     Route: 065
     Dates: start: 2016
  2. SERENASE (HALOPERIDOL) [Suspect]
     Active Substance: HALOPERIDOL
     Indication: PRODUCT USED FOR UNKNOWN INDICATION
     Dosage: 3X4 MG OR 3X5MG AND 10 MG
     Route: 048
     Dates: start: 2016
  3. TENOX                              /00393701/ [Suspect]
     Active Substance: TEMAZEPAM
     Indication: PRODUCT USED FOR UNKNOWN INDICATION
     Dosage: (MAX 20MG/DAY)
     Route: 065
     Dates: start: 2016
  4. DIAPAM                             /00017001/ [Suspect]
     Active Substance: DIAZEPAM
     Indication: PRODUCT USED FOR UNKNOWN INDICATION
     Dosage: MAX 30MG/DAY
     Route: 065
     Dates: start: 2016
  5. KETIPINOR [Suspect]
     Active Substance: QUETIAPINE FUMARATE
     Indication: PRODUCT USED FOR UNKNOWN INDICATION
     Route: 065
     Dates: start: 2016
  6. DEPRAKINE                          /00228501/ [Suspect]
     Active Substance: VALPROATE SODIUM
     Indication: PRODUCT USED FOR UNKNOWN INDICATION
     Route: 065
     Dates: start: 2016
  7. LITIUMKARBONAT [Suspect]
     Active Substance: LITHIUM CARBONATE
     Indication: PRODUCT USED FOR UNKNOWN INDICATION
     Route: 065
     Dates: start: 2016

REACTIONS (20)
  - Depressed level of consciousness [Unknown]
  - Tremor [Unknown]
  - Deafness [Unknown]
  - Mouth breathing [Unknown]
  - Nausea [Unknown]
  - Dizziness [Unknown]
  - Cognitive disorder [Unknown]
  - Drooling [Unknown]
  - Feeling cold [Unknown]
  - Muscle twitching [Unknown]
  - Vomiting [Unknown]
  - Glassy eyes [Unknown]
  - Dysarthria [Unknown]
  - Constipation [Unknown]
  - Breast enlargement [Unknown]
  - Restlessness [Unknown]
  - Hallucination [Unknown]
  - Skin disorder [Unknown]
  - Hyperhidrosis [Unknown]
  - Somnolence [Unknown]
